FAERS Safety Report 19489369 (Version 1)
Quarter: 2021Q3

REPORT INFORMATION
  Report Type: Spontaneous
  Country: DK (occurrence: DK)
  Receive Date: 20210703
  Receipt Date: 20210703
  Transmission Date: 20211014
  Serious: Yes (Life-Threatening, Hospitalization, Disabling)
  Sender: FDA-Public Use
  Company Number: DK-ACCORD-230406

PATIENT
  Age: 40 Year
  Sex: Male

DRUGS (4)
  1. CISPLATIN PFIZER [Suspect]
     Active Substance: CISPLATIN
     Indication: TESTICULAR CANCER METASTATIC
     Dosage: 1ST LINE OF CHEMO ENDED 30 MAR 2021. 2ND LINE OF CHEMO STARTED 06 APR?2021. STRENGTH: 1 MG / ML
     Route: 042
     Dates: start: 20210315, end: 20210409
  2. PANTOPRAZOLE [Concomitant]
     Active Substance: PANTOPRAZOLE
     Indication: GASTROOESOPHAGEAL REFLUX DISEASE
     Dates: start: 20210303
  3. ETOPOSIDE. [Suspect]
     Active Substance: ETOPOSIDE
     Indication: TESTICULAR CANCER METASTATIC
     Dosage: 1ST LINE OF CHEMO ENDED 30 MAR 2021. 2ND LINE OF CHEMO STARTED 06 APR?2021. STRENGTH: 20 MG / ML
     Route: 042
     Dates: start: 20210315, end: 20210409
  4. BLEOMYCIN [Suspect]
     Active Substance: BLEOMYCIN SULFATE
     Indication: TESTICULAR CANCER METASTATIC
     Dosage: 1ST LINE OF CHEMO ENDED 30 MAR 2021. 2ND LINE OF CHEMO STARTED 06 APR?2021. STRENGTH: 15000 IU
     Route: 042
     Dates: start: 20210315, end: 20210409

REACTIONS (5)
  - Aortic embolus [Unknown]
  - Abdominal pain upper [Unknown]
  - Malaise [Unknown]
  - Cerebral thrombosis [Unknown]
  - Mesenteric artery embolism [Unknown]

NARRATIVE: CASE EVENT DATE: 202104
